FAERS Safety Report 6564654-6 (Version None)
Quarter: 2010Q1

REPORT INFORMATION
  Report Type: 
  Country: None (occurrence: None)
  Receive Date: 20100201
  Receipt Date: 20091228
  Transmission Date: 20100710
  Serious: Yes (Hospitalization)
  Sender: FDA-Public Use
  Company Number: JP-SANOFI-AVENTIS-F01200900546

PATIENT
  Age: 39 Year
  Sex: Male
  Weight: 88 kg

DRUGS (11)
  1. CLOPIDOGREL BISULFATE [Suspect]
     Indication: ACUTE CORONARY SYNDROME
     Dosage: DOSE TEXT: STARTING DOSE
     Route: 048
     Dates: start: 20081210, end: 20081210
  2. CLOPIDOGREL BISULFATE [Suspect]
     Dosage: DOSE TEXT: STARTING DOSE
     Route: 048
     Dates: start: 20081210, end: 20081210
  3. CLOPIDOGREL BISULFATE [Suspect]
     Dosage: DOSE TEXT: MAINTENANCE DOSE
     Route: 048
     Dates: start: 20081211
  4. CLOPIDOGREL BISULFATE [Suspect]
     Dosage: DOSE TEXT: MAINTENANCE DOSE
     Route: 048
     Dates: start: 20081211
  5. ASPIRIN [Concomitant]
     Route: 048
     Dates: start: 20081210, end: 20081210
  6. ASPIRIN [Concomitant]
     Route: 048
     Dates: start: 20081211
  7. HEPARIN [Concomitant]
     Route: 042
     Dates: start: 20081210, end: 20081210
  8. HEPARIN [Concomitant]
     Route: 042
     Dates: start: 20081210, end: 20081211
  9. OMEPRAZOLE [Concomitant]
     Indication: PROPHYLAXIS
     Route: 048
     Dates: start: 20081210
  10. TANATRIL ^ALGOL^ [Concomitant]
     Indication: HYPERTENSION
     Route: 048
     Dates: start: 20081213
  11. LOCHOL [Concomitant]
     Route: 048
     Dates: start: 20081216

REACTIONS (1)
  - PRINZMETAL ANGINA [None]
